FAERS Safety Report 7232056-5 (Version None)
Quarter: 2011Q1

REPORT INFORMATION
  Report Type: 
  Country: None (occurrence: None)
  Receive Date: 20110118
  Receipt Date: 20110112
  Transmission Date: 20110831
  Serious: Yes (Death)
  Sender: FDA-Public Use
  Company Number: NL-BRISTOL-MYERS SQUIBB COMPANY-15486327

PATIENT
  Age: 23 Year
  Sex: Male

DRUGS (1)
  1. HYDROXYCARBAMIDE [Suspect]
     Indication: SICKLE CELL ANAEMIA

REACTIONS (1)
  - TONGUE NEOPLASM MALIGNANT STAGE UNSPECIFIED [None]
